FAERS Safety Report 7824221-0 (Version None)
Quarter: 2011Q4

REPORT INFORMATION
  Report Type: 
  Country: None (occurrence: None)
  Receive Date: 20111014
  Receipt Date: 20111005
  Transmission Date: 20120403
  Serious: Yes (Hospitalization)
  Sender: FDA-Public Use
  Company Number: 256426

PATIENT
  Age: 50 Year
  Sex: Female
  Weight: 68 kg

DRUGS (3)
  1. ENBREL [Suspect]
     Indication: RHEUMATOID ARTHRITIS
     Dosage: 50 MG, 1 WEEK, SUBCUTANEOUS; 300 MG (UNKNOWN) SUBCUTANEOUS
     Route: 058
     Dates: start: 20090331, end: 20090331
  2. METHOTREXATE [Suspect]
     Indication: PRODUCT USED FOR UNKNOWN INDICATION
     Dosage: 20 MG, 1 WEEK, SUBCUTANEOUS; 120 MG (UNKNOWN) SUBCUTANEOUS
     Route: 058
     Dates: start: 20090331, end: 20090331
  3. METHOTREXATE [Suspect]
     Indication: PRODUCT USED FOR UNKNOWN INDICATION
     Dosage: 20 MG, 1 WEEK, SUBCUTANEOUS; 120 MG (UNKNOWN) SUBCUTANEOUS
     Route: 058
     Dates: end: 20090331

REACTIONS (5)
  - CONDITION AGGRAVATED [None]
  - INTENTIONAL OVERDOSE [None]
  - NASAL CONGESTION [None]
  - MALAISE [None]
  - EMOTIONAL DISTRESS [None]
